FAERS Safety Report 4775993-3 (Version None)
Quarter: 2005Q3

REPORT INFORMATION
  Report Type: 
  Country: None (occurrence: None)
  Receive Date: 20050914
  Receipt Date: 20050401
  Transmission Date: 20060218
  Serious: Yes (Hospitalization, Other)
  Sender: FDA-Public Use
  Company Number: 163-20785-05040026 (0)

PATIENT
  Age: 70 Year
  Sex: Female
  Weight: 69 kg

DRUGS (15)
  1. THALOMID [Suspect]
     Indication: MULTIPLE MYELOMA
     Dosage: 200 MG, QD, ORAL; 50 MG, QD, ORAL
     Route: 048
     Dates: start: 20041012, end: 20041015
  2. THALOMID [Suspect]
     Indication: MULTIPLE MYELOMA
     Dosage: 200 MG, QD, ORAL; 50 MG, QD, ORAL
     Route: 048
     Dates: start: 20041103, end: 20041115
  3. DEXAMETHASONE [Suspect]
     Indication: MULTIPLE MYELOMA
     Dosage: 40 MG, QD, ORAL, 20 MG QD, ORAL
     Route: 048
     Dates: start: 20041012, end: 20041015
  4. DEXAMETHASONE [Suspect]
     Indication: MULTIPLE MYELOMA
     Dosage: 40 MG, QD, ORAL, 20 MG QD, ORAL
     Route: 048
     Dates: start: 20041103, end: 20041106
  5. VELCADE [Suspect]
     Indication: MULTIPLE MYELOMA
     Dosage: 1.7 MG, QD, INTRAVENOUS; SEE IMAGE
     Route: 042
     Dates: start: 20041009, end: 20041009
  6. VELCADE [Suspect]
     Indication: MULTIPLE MYELOMA
     Dosage: 1.7 MG, QD, INTRAVENOUS; SEE IMAGE
     Route: 042
     Dates: start: 20041012, end: 20041012
  7. VELCADE [Suspect]
     Indication: MULTIPLE MYELOMA
     Dosage: 1.7 MG, QD, INTRAVENOUS; SEE IMAGE
     Route: 042
     Dates: start: 20041016, end: 20041016
  8. VELCADE [Suspect]
     Indication: MULTIPLE MYELOMA
     Dosage: 1.7 MG, QD, INTRAVENOUS; SEE IMAGE
     Route: 042
     Dates: start: 20041020, end: 20041020
  9. CISPLATIN [Suspect]
     Indication: MULTIPLE MYELOMA
  10. ADRIAMYCIN PFS [Suspect]
     Indication: MULTIPLE MYELOMA
  11. CYCLOPHOSPHAMIDE [Suspect]
     Indication: MULTIPLE MYELOMA
  12. ETOPOSIDE [Suspect]
     Indication: MULTIPLE MYELOMA
  13. LEVOTHYROXINE (LEVOTHYROXINE) (UNKNOWN) [Concomitant]
  14. LOVENOX [Concomitant]
  15. ANTICOAGULANTS [Concomitant]

REACTIONS (3)
  - ATRIAL FIBRILLATION [None]
  - DEEP VEIN THROMBOSIS [None]
  - PANCYTOPENIA [None]
